FAERS Safety Report 9059638 (Version 3)
Quarter: 2013Q2

REPORT INFORMATION
  Report Type: Report from Study
  Country: SE (occurrence: SE)
  Receive Date: 20130212
  Receipt Date: 20130405
  Transmission Date: 20140414
  Serious: Yes (Life-Threatening, Hospitalization)
  Sender: FDA-Public Use
  Company Number: SE-AMGEN-SWECT2013008420

PATIENT
  Age: 64 Year
  Sex: Female

DRUGS (3)
  1. ETANERCEPT [Suspect]
     Indication: RHEUMATOID ARTHRITIS
     Dosage: 50 MG, UNSPECIFIED FREQUENCY
     Route: 058
     Dates: start: 20040330, end: 20120818
  2. METHOTREXATE [Concomitant]
     Dosage: 10 MG, UNSPECIFIED FREQUENCY
     Dates: start: 20040330, end: 20120818
  3. NSAID^S [Concomitant]
     Dosage: UNK
     Dates: start: 20050503, end: 20120818

REACTIONS (1)
  - Breast cancer female [Unknown]
